FAERS Safety Report 18597583 (Version 1)
Quarter: 2020Q4

REPORT INFORMATION
  Report Type: Other
  Country: GB (occurrence: GB)
  Receive Date: 20201209
  Receipt Date: 20201209
  Transmission Date: 20210114
  Serious: Yes (Death, Hospitalization, Other)
  Sender: FDA-Public Use
  Company Number: GB-VALIDUS PHARMACEUTICALS LLC-GB-2020VAL001017

PATIENT

DRUGS (8)
  1. WARFARIN SODIUM. [Suspect]
     Active Substance: WARFARIN SODIUM
     Indication: PRODUCT USED FOR UNKNOWN INDICATION
     Dosage: 1 MG, QD, AS PER INTERNATIONAL NORMALISED RATIO (INR)
     Route: 065
  2. FENOFIBRATE. [Suspect]
     Active Substance: FENOFIBRATE
     Indication: PRODUCT USED FOR UNKNOWN INDICATION
     Dosage: 160 MG, QD
     Route: 065
  3. RAMIPRIL. [Suspect]
     Active Substance: RAMIPRIL
     Indication: PRODUCT USED FOR UNKNOWN INDICATION
     Dosage: 10 MG, QD
     Route: 065
  4. AMLODIPINE                         /00972402/ [Suspect]
     Active Substance: AMLODIPINE BESYLATE
     Indication: PRODUCT USED FOR UNKNOWN INDICATION
     Dosage: 10 MG, QD
     Route: 065
  5. CLOPIDOGREL BISULFATE. [Suspect]
     Active Substance: CLOPIDOGREL BISULFATE
     Indication: PRODUCT USED FOR UNKNOWN INDICATION
     Dosage: 75 MG, QD
     Route: 065
  6. FUROSEMIDE. [Suspect]
     Active Substance: FUROSEMIDE
     Indication: PRODUCT USED FOR UNKNOWN INDICATION
     Dosage: 80 MG, QD
     Route: 065
  7. LETROZOLE. [Suspect]
     Active Substance: LETROZOLE
     Indication: PRODUCT USED FOR UNKNOWN INDICATION
     Dosage: 7.5 MG, QD
     Route: 065
  8. BISOPROLOL [Suspect]
     Active Substance: BISOPROLOL
     Indication: PRODUCT USED FOR UNKNOWN INDICATION
     Dosage: 10 MG, QD
     Route: 065

REACTIONS (40)
  - Kidney fibrosis [Fatal]
  - Acute kidney injury [Fatal]
  - Sepsis [Fatal]
  - Dilatation ventricular [Fatal]
  - Decreased appetite [Fatal]
  - Mucosal dryness [Fatal]
  - Jaundice [Fatal]
  - Dehydration [Fatal]
  - Lethargy [Fatal]
  - Hepatorenal failure [Fatal]
  - Hepatic necrosis [Fatal]
  - Hepatic steatosis [Fatal]
  - Hypotension [Fatal]
  - Cholestasis [Fatal]
  - Petechiae [Fatal]
  - International normalised ratio increased [Fatal]
  - Nephrosclerosis [Fatal]
  - Pericardial effusion [Fatal]
  - Dyspnoea [Fatal]
  - Orthopnoea [Fatal]
  - Aortic arteriosclerosis [Fatal]
  - Oedema peripheral [Fatal]
  - Asthenia [Fatal]
  - Confusional state [Fatal]
  - Skin weeping [Fatal]
  - Haemolysis [Fatal]
  - Urine output decreased [Fatal]
  - Change of bowel habit [Fatal]
  - Ocular icterus [Fatal]
  - Congestive hepatopathy [Fatal]
  - Ascites [Fatal]
  - Epistaxis [Fatal]
  - Hepatic fibrosis [Fatal]
  - Thirst [Fatal]
  - Abnormal loss of weight [Fatal]
  - Pleural effusion [Fatal]
  - Pulmonary oedema [Fatal]
  - Abdominal distension [Fatal]
  - Taste disorder [Fatal]
  - Nausea [Fatal]

NARRATIVE: CASE EVENT DATE: 202002
